FAERS Safety Report 25748282 (Version 7)
Quarter: 2025Q4

REPORT INFORMATION
  Report Type: Report from Study
  Country: EU (occurrence: EU)
  Receive Date: 20250902
  Receipt Date: 20251221
  Transmission Date: 20260117
  Serious: Yes (Hospitalization)
  Sender: ABBVIE
  Company Number: EU-ABBVIE-6423371

PATIENT
  Age: 60 Year
  Sex: Male

DRUGS (4)
  1. CARBIDOPA\LEVODOPA [Suspect]
     Active Substance: CARBIDOPA\LEVODOPA
     Indication: Parkinson^s disease
     Dosage: MD: 7.0 ML; CRT: 3.8 ML/H; CRN: 2.0 ML/H; ED: 1.0 ML?LAST ADMIN DATE: 2025
     Route: 050
     Dates: start: 20250721
  2. CARBIDOPA\LEVODOPA [Suspect]
     Active Substance: CARBIDOPA\LEVODOPA
     Dosage: MD: 7.0 ML; CRT: 3.9 ML/H; CRN: 2.0 ML/H; ED: 2.5 ML, FIRST ADMIN DATE AND LAST ADMIN DATE: 2025
     Route: 050
  3. CARBIDOPA\LEVODOPA [Suspect]
     Active Substance: CARBIDOPA\LEVODOPA
     Dosage: MD: 7.0 ML; CRD: 3.6 ML/H; CRN: 2.0 ML/H; ED: 1.0 ML, FIRST AND LAST ADMIN DATE: 2025
     Route: 050
  4. CARBIDOPA\LEVODOPA [Suspect]
     Active Substance: CARBIDOPA\LEVODOPA
     Dosage: MD: 7 ML; CRT: 3.4 ML/H; CRN: 2.0 ML/H, ED. 1.0 ML FIRST ADMIN DATE: 2025
     Route: 050

REACTIONS (14)
  - General physical health deterioration [Not Recovered/Not Resolved]
  - Hypokinesia [Not Recovered/Not Resolved]
  - Treatment noncompliance [Unknown]
  - Hallucination [Not Recovered/Not Resolved]
  - Device occlusion [Recovered/Resolved]
  - Device occlusion [Recovered/Resolved]
  - Dysphagia [Not Recovered/Not Resolved]
  - On and off phenomenon [Not Recovered/Not Resolved]
  - Cystitis [Not Recovered/Not Resolved]
  - Speech disorder [Not Recovered/Not Resolved]
  - Enteral nutrition [Not Recovered/Not Resolved]
  - Parkinson^s disease [Unknown]
  - Bedridden [Not Recovered/Not Resolved]
  - Device occlusion [Recovered/Resolved]

NARRATIVE: CASE EVENT DATE: 20250101
